FAERS Safety Report 4657614-3 (Version None)
Quarter: 2005Q2

REPORT INFORMATION
  Report Type: 
  Country: None (occurrence: None)
  Receive Date: 20050506
  Receipt Date: 20050503
  Transmission Date: 20051028
  Serious: Yes (Other)
  Sender: FDA-Public Use
  Company Number: 1781-155

PATIENT
  Sex: Male

DRUGS (1)
  1. GLYCOPYRROLATE [Suspect]
     Dates: start: 19980101

REACTIONS (1)
  - ATRIAL FIBRILLATION [None]
